FAERS Safety Report 4804357-9 (Version None)
Quarter: 2005Q4

REPORT INFORMATION
  Report Type: 
  Country: None (occurrence: None)
  Receive Date: 20051020
  Receipt Date: 20051011
  Transmission Date: 20060501
  Serious: Yes (Death)
  Sender: FDA-Public Use
  Company Number: IL-NOVOPROD-247687

PATIENT
  Age: 9 Day
  Sex: Male

DRUGS (1)
  1. NOVOSEVEN [Suspect]
     Indication: POST PROCEDURAL HAEMORRHAGE
     Dosage: 1.2 MG, SINGLE
     Dates: start: 20051011, end: 20051011

REACTIONS (3)
  - HAEMORRHAGE [None]
  - NEONATAL DISORDER [None]
  - POST PROCEDURAL HAEMORRHAGE [None]
